FAERS Safety Report 9245756 (Version 1)
Quarter: 2013Q2

REPORT INFORMATION
  Report Type: Report from Study
  Country: US (occurrence: US)
  Receive Date: 20130422
  Receipt Date: 20130422
  Transmission Date: 20140414
  Serious: Yes (Other)
  Sender: FDA-Public Use
  Company Number: US-ROCHE-1216317

PATIENT
  Age: 53 Year
  Sex: Female

DRUGS (4)
  1. HERCEPTIN [Suspect]
     Indication: BREAST CANCER
     Route: 030
     Dates: start: 20121128
  2. VIAGRA [Concomitant]
     Indication: BREAST CANCER
     Route: 048
     Dates: start: 20120926, end: 20121121
  3. ADRIAMYCIN [Concomitant]
     Indication: BREAST CANCER
     Route: 042
     Dates: start: 20120926, end: 20121121
  4. CYTOXAN [Concomitant]
     Indication: BREAST CANCER
     Route: 042
     Dates: start: 20120926, end: 20121121

REACTIONS (1)
  - Madarosis [Not Recovered/Not Resolved]
